FAERS Safety Report 23937430 (Version 1)
Quarter: 2024Q2

REPORT INFORMATION
  Report Type: Report from Study
  Country: IT (occurrence: IT)
  Receive Date: 20240604
  Receipt Date: 20240604
  Transmission Date: 20240716
  Serious: Yes (Other)
  Sender: FDA-Public Use
  Company Number: None

PATIENT
  Age: 74 Year
  Sex: Male

DRUGS (13)
  1. PEMETREXED [Suspect]
     Active Substance: PEMETREXED
     Indication: Lung carcinoma cell type unspecified stage IV
     Dosage: UNK
     Route: 065
     Dates: start: 20231130
  2. PEMETREXED [Suspect]
     Active Substance: PEMETREXED
     Dosage: 900 MILLIGRAM, Q21D (THERAPY EVERY 21 DAYS - CYCLE II)
     Route: 042
     Dates: start: 20231229, end: 20231229
  3. PEMBROLIZUMAB [Suspect]
     Active Substance: PEMBROLIZUMAB
     Indication: Lung carcinoma cell type unspecified stage IV
     Dosage: UNK
     Route: 065
     Dates: start: 20231130
  4. PEMBROLIZUMAB [Suspect]
     Active Substance: PEMBROLIZUMAB
     Dosage: 200 MILLIGRAM, Q21D (THERAPY EVERY 21 DAYS - CYCLE II)
     Route: 042
     Dates: start: 20231229, end: 20231229
  5. CARBOPLATIN [Suspect]
     Active Substance: CARBOPLATIN
     Indication: Lung carcinoma cell type unspecified stage IV
     Dosage: UNK
     Route: 065
     Dates: start: 20231130
  6. CARBOPLATIN [Suspect]
     Active Substance: CARBOPLATIN
     Dosage: 330 MILLIGRAM, Q21D (THERAPY EVERY 21 DAYS - CYCLE II)
     Route: 042
     Dates: start: 20231229, end: 20231229
  7. CORAL [Concomitant]
     Active Substance: TRICLOSAN
     Dosage: UNK
     Route: 065
  8. DEURSIL [Concomitant]
     Active Substance: URSODIOL
     Dosage: UNK
     Route: 065
  9. BISOPROLOL FUMARATE [Concomitant]
     Active Substance: BISOPROLOL FUMARATE
     Dosage: UNK
     Route: 065
  10. SIMVASTATIN [Concomitant]
     Active Substance: SIMVASTATIN
     Dosage: UNK
     Route: 065
  11. OMEPRAZOLE [Concomitant]
     Active Substance: DONEPEZIL HYDROCHLORIDE\OMEPRAZOLE\OMEPRAZOLE MAGNESIUM
     Dosage: UNK
     Route: 065
  12. METFORMIN HYDROCHLORIDE [Concomitant]
     Active Substance: METFORMIN HYDROCHLORIDE
     Dosage: UNK
     Route: 065
  13. DEXAMETHASONE [Concomitant]
     Active Substance: DEXAMETHASONE
     Dosage: UNK
     Route: 065

REACTIONS (3)
  - Thrombocytopenia [Recovering/Resolving]
  - Dysgeusia [Recovering/Resolving]
  - Abdominal discomfort [Recovering/Resolving]

NARRATIVE: CASE EVENT DATE: 20240101
